FAERS Safety Report 23171972 (Version 1)
Quarter: 2023Q4

REPORT INFORMATION
  Report Type: Spontaneous
  Country: NL (occurrence: NL)
  Receive Date: 20231110
  Receipt Date: 20231110
  Transmission Date: 20240109
  Serious: Yes (Life-Threatening, Hospitalization, Other)
  Sender: FDA-Public Use
  Company Number: None

PATIENT
  Age: 73 Year
  Sex: Female
  Weight: 75 kg

DRUGS (16)
  1. ACETAMINOPHEN [Interacting]
     Active Substance: ACETAMINOPHEN
     Indication: Osteoarthritis
     Dosage: 1000 MILLIGRAM, Q6H (4X PER DAY 2 PIECES)
     Route: 065
     Dates: start: 20230906, end: 20231003
  2. ACETAMINOPHEN [Interacting]
     Active Substance: ACETAMINOPHEN
     Indication: Postoperative care
  3. FLUCLOXACILLIN [Interacting]
     Active Substance: FLUCLOXACILLIN
     Indication: Staphylococcal bacteraemia
     Dosage: 12G/DG
     Route: 065
     Dates: start: 20230911, end: 20231003
  4. FLUCLOXACILLIN [Interacting]
     Active Substance: FLUCLOXACILLIN
     Indication: Aortic valve replacement
  5. FUROSEMIDE [Concomitant]
     Active Substance: FUROSEMIDE
     Dosage: 40 MILLIGRAM (TABLET)
     Route: 065
  6. LEVOCETIRIZINE [Concomitant]
     Active Substance: LEVOCETIRIZINE
     Dosage: 5 MILLIGRAM (FILM-COATED TABLET)
     Route: 065
  7. CHOLECALCIFEROL [Concomitant]
     Active Substance: CHOLECALCIFEROL
     Dosage: 25000 IE/ML (UNITS PER MILLILITER) (DRINK)
     Route: 065
  8. AMITRIPTYLINE HYDROCHLORIDE [Concomitant]
     Active Substance: AMITRIPTYLINE HYDROCHLORIDE
     Dosage: 10 MILLIGRAM (TABLET)
     Route: 065
  9. HYDROXYCHLOROQUINE [Concomitant]
     Active Substance: HYDROXYCHLOROQUINE
     Dosage: 200 MILLIGRAM (COATED TABLET)
     Route: 065
  10. CLOPIDOGREL [Concomitant]
     Active Substance: CLOPIDOGREL BISULFATE
     Dosage: 75 MG (MILLIGRAM) (TABLET)
     Route: 065
  11. NIFEDIPINE [Concomitant]
     Active Substance: NIFEDIPINE
     Dosage: 30 MILLIGRAM (CONTROLLED-RELEASE TABLET)
     Route: 065
  12. PREDNISOLONE [Concomitant]
     Active Substance: PREDNISOLONE
     Dosage: 5 MILLIGRAM (TABLET)
     Route: 065
  13. PANTOPRAZOLE SODIUM [Concomitant]
     Active Substance: PANTOPRAZOLE SODIUM
     Dosage: 40MG, 2X PER DAY 1 PIECE (TABLET GASTRO-RESISTANT)
     Route: 065
  14. CANDESARTAN [Concomitant]
     Active Substance: CANDESARTAN
     Dosage: 4 MILLIGRAM (TABLET)
     Route: 065
  15. ALENDRONIC ACID [Concomitant]
     Active Substance: ALENDRONIC ACID
     Dosage: 70 MILLIGRAM (TABLET)
     Route: 065
  16. MINERAL OIL EMULSION\PETROLATUM [Concomitant]
     Active Substance: MINERAL OIL EMULSION\PETROLATUM
     Dosage: VIAL 15ML, 2-4X PER DAY 1 DRIP INTO BOTH EYES
     Route: 065

REACTIONS (2)
  - Metabolic acidosis [Recovering/Resolving]
  - Drug interaction [Recovering/Resolving]
